FAERS Safety Report 8862906 (Version 2)
Quarter: 2012Q4

REPORT INFORMATION
  Report Type: 
  Country: US (occurrence: US)
  Receive Date: 20121026
  Receipt Date: 20121227
  Transmission Date: 20130627
  Serious: Yes (Other)
  Sender: FDA-Public Use
  Company Number: US-PFIZER INC-2012267430

PATIENT
  Age: 32 Year
  Sex: Female
  Weight: 81.63 kg

DRUGS (11)
  1. LYRICA [Suspect]
     Indication: FIBROMYALGIA
     Dosage: 75 mg, 2x/day
     Route: 048
     Dates: start: 20121022, end: 20121024
  2. CYMBALTA [Concomitant]
     Dosage: UNK
  3. ZANAFLEX [Concomitant]
     Dosage: UNK
  4. AMBIEN [Concomitant]
     Dosage: UNK
  5. VICODIN [Concomitant]
     Dosage: UNK
  6. ZYRTEC [Concomitant]
     Dosage: UNK
  7. PRILOSEC [Concomitant]
     Dosage: UNK
  8. VITAMIN B12 [Concomitant]
     Dosage: UNK
  9. CALCIUM/VITAMIN D3 [Concomitant]
     Dosage: UNK
  10. PLAQUENIL [Concomitant]
     Dosage: UNK
  11. CELEBREX [Concomitant]
     Dosage: UNK

REACTIONS (7)
  - Hallucination [Unknown]
  - Euphoric mood [Unknown]
  - Swelling face [Unknown]
  - Swollen tongue [Unknown]
  - Rash macular [Unknown]
  - Somnolence [Unknown]
  - Headache [Unknown]
